FAERS Safety Report 8379572-0 (Version None)
Quarter: 2012Q2

REPORT INFORMATION
  Report Type: 
  Country: None (occurrence: None)
  Receive Date: 20120523
  Receipt Date: 20120509
  Transmission Date: 20120825
  Serious: Yes (Hospitalization, Other)
  Sender: FDA-Public Use
  Company Number: US-JNJFOC-20120509176

PATIENT
  Sex: Female
  Weight: 70.76 kg

DRUGS (6)
  1. RISPERDAL [Suspect]
     Indication: DEMENTIA
     Route: 048
  2. RISPERDAL CONSTA [Suspect]
     Indication: DEMENTIA ALZHEIMER'S TYPE
     Route: 030
     Dates: start: 20120401, end: 20120101
  3. RISPERDAL [Suspect]
     Route: 048
     Dates: start: 20110101, end: 20120502
  4. RISPERDAL [Suspect]
     Route: 048
     Dates: start: 20110101, end: 20120502
  5. RISPERDAL CONSTA [Suspect]
     Indication: DEMENTIA
     Route: 030
     Dates: start: 20120401, end: 20120101
  6. RISPERDAL [Suspect]
     Indication: DEMENTIA ALZHEIMER'S TYPE
     Route: 048

REACTIONS (10)
  - EATING DISORDER [None]
  - AGGRESSION [None]
  - AGITATION [None]
  - ABASIA [None]
  - COMMUNICATION DISORDER [None]
  - URINARY TRACT INFECTION [None]
  - CLOSTRIDIAL INFECTION [None]
  - HYPERTENSION [None]
  - CONDITION AGGRAVATED [None]
  - ABNORMAL LOSS OF WEIGHT [None]
